FAERS Safety Report 9125389 (Version 2)
Quarter: 2013Q2

REPORT INFORMATION
  Report Type: Spontaneous
  Country: US (occurrence: US)
  Receive Date: 20130117
  Receipt Date: 20130423
  Transmission Date: 20140414
  Serious: Yes (Death, Hospitalization)
  Sender: FDA-Public Use
  Company Number: US-BRISTOL-MYERS SQUIBB COMPANY-17083544

PATIENT
  Age: 73 Year
  Sex: Female

DRUGS (1)
  1. YERVOY [Suspect]
     Dosage: 1DF= 2 INFUSIONS

REACTIONS (3)
  - Intestinal perforation [Fatal]
  - Enterocolitis [Unknown]
  - Rash [Unknown]
